FAERS Safety Report 8574304-5 (Version None)
Quarter: 2012Q3

REPORT INFORMATION
  Report Type: 
  Country: None (occurrence: None)
  Receive Date: 20120806
  Receipt Date: 20120724
  Transmission Date: 20120928
  Serious: No
  Sender: FDA-Public Use
  Company Number: US-ASTRAZENECA-2012SE42399

PATIENT
  Age: 26328 Day
  Sex: Male
  Weight: 78.8 kg

DRUGS (15)
  1. FLOMAX [Concomitant]
     Indication: BENIGN PROSTATIC HYPERPLASIA
  2. LIPITOR [Concomitant]
  3. NORVASC [Concomitant]
  4. PEPCID [Concomitant]
  5. TRIAMCINOLONE ACETONIDE [Concomitant]
  6. LEVOTHROID [Concomitant]
     Indication: HYPOTHYROIDISM
  7. CAPRELSA [Suspect]
     Route: 048
     Dates: start: 20120405, end: 20120608
  8. CAPRELSA [Suspect]
     Route: 048
     Dates: start: 20120614
  9. CAPRELSA [Suspect]
     Indication: THYROID CANCER
     Route: 048
  10. AVODART [Concomitant]
  11. VANDETANIB [Concomitant]
  12. ASPIRIN [Concomitant]
     Indication: CORONARY ARTERY DISEASE
  13. VITAMIN D [Concomitant]
  14. VANICREAM [Concomitant]
  15. ASPIRIN [Concomitant]

REACTIONS (6)
  - PRURITUS GENERALISED [None]
  - SKIN REACTION [None]
  - CONJUNCTIVAL OEDEMA [None]
  - FACE OEDEMA [None]
  - RASH MACULAR [None]
  - ERYTHEMA [None]
